FAERS Safety Report 24650485 (Version 1)
Quarter: 2024Q4

REPORT INFORMATION
  Report Type: Spontaneous
  Country: US (occurrence: US)
  Receive Date: 20241122
  Receipt Date: 20241122
  Transmission Date: 20250114
  Serious: Yes (Other)
  Sender: Haleon PLC
  Company Number: US-HALEON-2210264

PATIENT
  Age: 19 Year
  Sex: Female

DRUGS (1)
  1. ADVIL [Suspect]
     Active Substance: IBUPROFEN
     Indication: Product used for unknown indication
     Dosage: ONE WEEK PER MONTH DURING MENSTRUAL CYCLE

REACTIONS (6)
  - Glomerulonephritis minimal lesion [Recovering/Resolving]
  - Hypercholesterolaemia [Recovering/Resolving]
  - Oedema [Recovering/Resolving]
  - Glomerulonephropathy [Recovering/Resolving]
  - Proteinuria [Recovering/Resolving]
  - Hypoalbuminaemia [Recovering/Resolving]
